FAERS Safety Report 20979552 (Version 3)
Quarter: 2023Q1

REPORT INFORMATION
  Report Type: Spontaneous
  Country: JP (occurrence: JP)
  Receive Date: 20220620
  Receipt Date: 20230102
  Transmission Date: 20230418
  Serious: Yes (Hospitalization, Other)
  Sender: FDA-Public Use
  Company Number: JP-ADVANZ PHARMA-202206003510

PATIENT

DRUGS (2)
  1. HYDROXYCHLOROQUINE SULFATE [Suspect]
     Active Substance: HYDROXYCHLOROQUINE SULFATE
     Indication: Systemic lupus erythematosus
     Dosage: 200 MG, QD (IN THE EVENING, THE PATIENT TOOK 1 TABLET )
     Route: 048
     Dates: start: 20220601, end: 20220602
  2. IVGY [Concomitant]
     Indication: Systemic lupus erythematosus
     Dosage: 500 MG (CYCLE 1)

REACTIONS (7)
  - Meningitis aseptic [Recovered/Resolved]
  - Nuchal rigidity [Recovered/Resolved]
  - Hyperhidrosis [Recovered/Resolved]
  - Depressed level of consciousness [Recovered/Resolved]
  - Meningism [Recovered/Resolved]
  - Headache [Recovered/Resolved]
  - Pyrexia [Recovered/Resolved]

NARRATIVE: CASE EVENT DATE: 20220601
